FAERS Safety Report 21682826 (Version 2)
Quarter: 2022Q4

REPORT INFORMATION
  Report Type: Spontaneous
  Country: US (occurrence: None)
  Receive Date: 20221205
  Receipt Date: 20221230
  Transmission Date: 20230113
  Serious: Yes (Hospitalization)
  Sender: FDA-Public Use
  Company Number: US-FARMAPROD-202210-2129

PATIENT
  Age: 75 Year
  Sex: Female

DRUGS (26)
  1. OXERVATE [Suspect]
     Active Substance: CENEGERMIN-BKBJ
     Indication: Neurotrophic keratopathy
     Route: 047
     Dates: start: 20220926
  2. OXERVATE [Suspect]
     Active Substance: CENEGERMIN-BKBJ
     Route: 047
     Dates: start: 20221203
  3. REFRESH TEARS [Concomitant]
     Active Substance: CARBOXYMETHYLCELLULOSE SODIUM
  4. PREDNISOLONE [Concomitant]
     Active Substance: PREDNISOLONE
     Dosage: 15 MILLIGRAMS / 5 MILLILITERS
  5. FLOVENT HFA [Concomitant]
     Active Substance: FLUTICASONE PROPIONATE
     Dosage: AEROSOL WITH ADAPTER
  6. SACCHAROMYCES CEREVISIAE [Concomitant]
     Active Substance: SACCHAROMYCES CEREVISIAE
  7. CALCIUM [Concomitant]
     Active Substance: CALCIUM
  8. VITAMIN B12 [Concomitant]
     Active Substance: CYANOCOBALAMIN
  9. VITAMIN B COMPLEX [Concomitant]
     Active Substance: CYANOCOBALAMIN\DEXPANTHENOL\NIACINAMIDE\PYRIDOXINE HYDROCHLORIDE\RIBOFLAVIN 5^-PHOSPHATE SODIUM\THIA
  10. IRON [Concomitant]
     Active Substance: IRON
     Dosage: 325(65) MILLIGRAMS
  11. VITAMIN C [Concomitant]
     Active Substance: ASCORBIC ACID
  12. HERBALS\TURMERIC [Concomitant]
     Active Substance: HERBALS\TURMERIC
  13. FLAXSEED [Concomitant]
     Active Substance: FLAX SEED
  14. FISH OIL [Concomitant]
     Active Substance: FISH OIL
  15. HUMIRA [Concomitant]
     Active Substance: ADALIMUMAB
     Dosage: 40 MILLIGRAMS / 0.4 MILLILITERS SYRINGE KIT
  16. LEFLUNOMIDE [Concomitant]
     Active Substance: LEFLUNOMIDE
  17. VALTREX [Concomitant]
     Active Substance: VALACYCLOVIR HYDROCHLORIDE
  18. MOXIFLOXACIN [Concomitant]
     Active Substance: MOXIFLOXACIN
  19. VALGANCICLOVIR HYDROCHLORIDE [Concomitant]
     Active Substance: VALGANCICLOVIR HYDROCHLORIDE
  20. DOXYCYCLINE HYCLATE [Concomitant]
     Active Substance: DOXYCYCLINE HYCLATE
  21. LUMIGAN [Concomitant]
     Active Substance: BIMATOPROST
  22. COMBIGAN [Concomitant]
     Active Substance: BRIMONIDINE TARTRATE\TIMOLOL MALEATE
     Dosage: 0.2% - 0.5%
  23. VALTREX [Concomitant]
     Active Substance: VALACYCLOVIR HYDROCHLORIDE
  24. DORZOLAMIDE\TIMOLOL [Concomitant]
     Active Substance: DORZOLAMIDE\TIMOLOL
  25. ADVAIR HFA [Concomitant]
     Active Substance: FLUTICASONE PROPIONATE\SALMETEROL XINAFOATE
     Dosage: 115-21MCG HYDROFLUOROALKANE AEROSOL WITH ADAPTER
  26. DIAMOX SEQUELS [Concomitant]
     Active Substance: ACETAZOLAMIDE
     Route: 048
     Dates: start: 20221003, end: 20221110

REACTIONS (7)
  - Hospitalisation [Recovered/Resolved]
  - Wrong technique in product usage process [Unknown]
  - Device use issue [Unknown]
  - Facial pain [Unknown]
  - Eye pain [Unknown]
  - Weight decreased [Unknown]
  - Cough [Unknown]

NARRATIVE: CASE EVENT DATE: 20221118
